FAERS Safety Report 7801368-6 (Version None)
Quarter: 2011Q4

REPORT INFORMATION
  Report Type: 
  Country: None (occurrence: None)
  Receive Date: 20111007
  Receipt Date: 20111003
  Transmission Date: 20120403
  Serious: No
  Sender: FDA-Public Use
  Company Number: US-PFIZER INC-2011236228

PATIENT
  Sex: Female
  Weight: 65.76 kg

DRUGS (1)
  1. PRISTIQ [Suspect]
     Indication: DEPRESSION
     Dosage: 50 MG UNK FREQUENCY
     Route: 048
     Dates: start: 20100501, end: 20111002

REACTIONS (7)
  - FEELING ABNORMAL [None]
  - TINNITUS [None]
  - WITHDRAWAL SYNDROME [None]
  - EMOTIONAL DISORDER [None]
  - FRUSTRATION [None]
  - DISTURBANCE IN ATTENTION [None]
  - HEADACHE [None]
